FAERS Safety Report 8873189 (Version 3)
Quarter: 2012Q4

REPORT INFORMATION
  Report Type: 
  Country: IE (occurrence: IE)
  Receive Date: 20121029
  Receipt Date: 20121123
  Transmission Date: 20130627
  Serious: Yes (Other)
  Sender: FDA-Public Use
  Company Number: IE-PFIZER INC-2012267799

PATIENT
  Age: 38 Year
  Sex: Female
  Weight: 120 kg

DRUGS (1)
  1. CHAMPIX [Suspect]
     Indication: SMOKING CESSATION THERAPY
     Dosage: 1 mg daily
     Route: 048
     Dates: start: 20121002, end: 201210

REACTIONS (5)
  - Mood altered [Recovered/Resolved]
  - Activities of daily living impaired [Recovered/Resolved]
  - Bedridden [Recovered/Resolved]
  - Anger [Recovered/Resolved]
  - Crying [Recovered/Resolved]
